FAERS Safety Report 7834028 (Version 8)
Quarter: 2020Q1

REPORT INFORMATION
  Report Type: Report from Study
  Country: JP (occurrence: JP)
  Receive Date: 20110228
  Receipt Date: 20200212
  Transmission Date: 20200409
  Serious: Yes (Hospitalization, Other)
  Sender: FDA-Public Use
  Company Number: JP-CELGENEUS-087-21880-10121088

PATIENT
  Age: 68 Year
  Sex: Female

DRUGS (70)
  1. DEXART [Concomitant]
     Active Substance: DEXAMETHASONE SODIUM PHOSPHATE
     Dosage: 33 MILLIGRAM
     Route: 041
     Dates: start: 20100827, end: 20100827
  2. DEXART [Concomitant]
     Active Substance: DEXAMETHASONE SODIUM PHOSPHATE
     Dosage: 20 MILLIGRAM
     Route: 041
     Dates: start: 20110703, end: 20110710
  3. OMEPRAZON [Concomitant]
     Active Substance: OMEPRAZOLE
     Dosage: 20 MILLIGRAM
     Route: 048
     Dates: start: 20101004, end: 20110210
  4. TRYPTANOL [Concomitant]
     Active Substance: AMITRIPTYLINE
     Dosage: 25 MILLIGRAM
     Route: 048
     Dates: start: 20110209, end: 20110729
  5. OXYCONTIN [Concomitant]
     Active Substance: OXYCODONE HYDROCHLORIDE
     Indication: PLASMA CELL MYELOMA
     Dosage: 30 MILLIGRAM
     Route: 048
     Dates: start: 20100726, end: 20100801
  6. OXYCONTIN [Concomitant]
     Active Substance: OXYCODONE HYDROCHLORIDE
     Dosage: 10 MILLIGRAM
     Route: 048
     Dates: start: 20100816, end: 20100822
  7. REVLIMID [Suspect]
     Active Substance: LENALIDOMIDE
     Dosage: 10 MILLIGRAM
     Route: 048
     Dates: start: 20110330, end: 20110419
  8. LENADEX [Suspect]
     Active Substance: DEXAMETHASONE ACETATE
     Dosage: 16 MILLIGRAM
     Route: 048
     Dates: start: 20110309, end: 20110322
  9. ENDOXAN [Suspect]
     Active Substance: CYCLOPHOSPHAMIDE
     Dosage: 50 MILLIGRAM
     Route: 048
     Dates: start: 20110415, end: 20110416
  10. OXYCONTIN [Concomitant]
     Active Substance: OXYCODONE HYDROCHLORIDE
     Dosage: 20 MILLIGRAM
     Route: 048
     Dates: start: 20110209, end: 20110308
  11. ALLOID G [Concomitant]
     Active Substance: SODIUM ALGINATE
     Indication: PROPHYLAXIS
     Dosage: 60 MILLILITER
     Route: 048
     Dates: start: 20101213, end: 20101226
  12. KAYTWO N [Concomitant]
     Active Substance: MENATETRENONE
     Indication: PROPHYLAXIS
     Dosage: 10 MILLIGRAM
     Route: 041
     Dates: start: 20110703, end: 20110707
  13. REVLIMID [Suspect]
     Active Substance: LENALIDOMIDE
     Dosage: 10 MILLIGRAM
     Route: 048
     Dates: start: 20110309, end: 20110322
  14. ENDOXAN [Suspect]
     Active Substance: CYCLOPHOSPHAMIDE
     Dosage: 50 MILLIGRAM
     Route: 048
     Dates: start: 20110615, end: 20110702
  15. PREDONINE [Suspect]
     Active Substance: PREDNISOLONE
     Dosage: 20 MILLIGRAM
     Route: 048
     Dates: start: 20110518, end: 20110702
  16. PREDONINE [Suspect]
     Active Substance: PREDNISOLONE
     Dosage: 20 MILLIGRAM
     Route: 048
     Dates: start: 20110720, end: 20110729
  17. DEXART [Concomitant]
     Active Substance: DEXAMETHASONE SODIUM PHOSPHATE
     Dosage: 0.5A
     Route: 041
     Dates: start: 20100804, end: 20100809
  18. OMEPRAZON [Concomitant]
     Active Substance: OMEPRAZOLE
     Indication: PROPHYLAXIS
     Dosage: 20 MILLIGRAM
     Route: 048
     Dates: start: 20100729, end: 20100924
  19. OXYCONTIN [Concomitant]
     Active Substance: OXYCODONE HYDROCHLORIDE
     Dosage: 30 MILLIGRAM
     Route: 048
     Dates: start: 20110309, end: 20110410
  20. OXINORM [Concomitant]
     Dosage: 7.5 MILLIGRAM
     Route: 048
     Dates: start: 20110323, end: 20110614
  21. REVLIMID [Suspect]
     Active Substance: LENALIDOMIDE
     Dosage: 15 MILLIGRAM
     Route: 048
     Dates: start: 20100908, end: 20100914
  22. REVLIMID [Suspect]
     Active Substance: LENALIDOMIDE
     Dosage: 10 MILLIGRAM
     Route: 048
     Dates: start: 20110113, end: 20110203
  23. DEXART [Concomitant]
     Active Substance: DEXAMETHASONE SODIUM PHOSPHATE
     Dosage: 0.5A
     Route: 041
     Dates: start: 20100731, end: 20100803
  24. OXYCONTIN [Concomitant]
     Active Substance: OXYCODONE HYDROCHLORIDE
     Dosage: 15 MILLIGRAM
     Route: 048
     Dates: start: 20100809, end: 20100815
  25. OXYCONTIN [Concomitant]
     Active Substance: OXYCODONE HYDROCHLORIDE
     Dosage: 10 MILLIGRAM
     Route: 048
     Dates: start: 20100827, end: 20100924
  26. VALIXA [Concomitant]
     Active Substance: VALGANCICLOVIR
     Indication: PROPHYLAXIS
     Dosage: 900 MILLIGRAM
     Route: 048
     Dates: start: 20100917, end: 20100918
  27. OXINORM [Concomitant]
     Indication: PLASMA CELL MYELOMA
     Dosage: 5 MILLIGRAM
     Route: 048
     Dates: start: 20110209, end: 20110308
  28. PETROLATUM. [Concomitant]
     Active Substance: PETROLATUM
     Indication: PROPHYLAXIS
     Dosage: ADEQUATE DOSE
     Route: 061
     Dates: start: 20110209, end: 20110729
  29. LENADEX [Suspect]
     Active Substance: DEXAMETHASONE ACETATE
     Dosage: 4 MILLIGRAM
     Route: 048
     Dates: start: 20110211, end: 20110308
  30. DECADRON [Concomitant]
     Active Substance: DEXAMETHASONE
     Indication: PLASMA CELL MYELOMA
     Dosage: 8 MILLIGRAM
     Route: 048
     Dates: start: 20100810, end: 20100819
  31. DECADRON [Concomitant]
     Active Substance: DEXAMETHASONE
     Dosage: 1 MILLIGRAM
     Route: 048
     Dates: start: 20101004, end: 20110112
  32. DEXART [Concomitant]
     Active Substance: DEXAMETHASONE SODIUM PHOSPHATE
     Dosage: 8 MILLIGRAM
     Route: 041
     Dates: start: 20110711, end: 20110717
  33. DEXART [Concomitant]
     Active Substance: DEXAMETHASONE SODIUM PHOSPHATE
     Dosage: 4 MILLIGRAM
     Route: 041
     Dates: start: 20110718, end: 20110719
  34. MAGLAX [Concomitant]
     Active Substance: MAGNESIUM OXIDE
     Indication: PROPHYLAXIS
     Dosage: 1500 MILLIGRAM
     Route: 048
     Dates: start: 20100729, end: 20100924
  35. MAGLAX [Concomitant]
     Active Substance: MAGNESIUM OXIDE
     Dosage: 1500 MILLIGRAM
     Route: 048
     Dates: start: 20110209, end: 20110729
  36. TRYPTANOL [Concomitant]
     Active Substance: AMITRIPTYLINE
     Dosage: 50 MILLIGRAM
     Route: 048
     Dates: start: 20101001, end: 20110210
  37. BAYASPIRIN [Concomitant]
     Active Substance: ASPIRIN
     Dosage: 100 MILLIGRAM
     Route: 048
     Dates: start: 20101001, end: 20101201
  38. OXINORM [Concomitant]
     Dosage: 10 MILLIGRAM
     Route: 048
     Dates: start: 20110309, end: 20110318
  39. PLATELETS [Concomitant]
     Active Substance: HUMAN PLATELET, ALLOGENIC
     Indication: PLASMA CELL MYELOMA
     Route: 041
     Dates: start: 20110429, end: 20110429
  40. REVLIMID [Suspect]
     Active Substance: LENALIDOMIDE
     Dosage: 10 MILLIGRAM
     Route: 048
     Dates: start: 20110518, end: 20110607
  41. LENADEX [Suspect]
     Active Substance: DEXAMETHASONE ACETATE
     Indication: PLASMA CELL MYELOMA
     Dosage: 4 MILLIGRAM
     Route: 048
     Dates: start: 20110113, end: 20110210
  42. HYPEN (INDAPAMIDE) [Suspect]
     Active Substance: INDAPAMIDE
     Indication: PLASMA CELL MYELOMA
     Dosage: 400 MILLIGRAM
     Route: 048
     Dates: start: 20100729, end: 20100924
  43. BAYASPIRIN [Concomitant]
     Active Substance: ASPIRIN
     Indication: PROPHYLAXIS
     Dosage: 100 MILLIGRAM
     Route: 048
     Dates: start: 20100729, end: 20100924
  44. OXYCONTIN [Concomitant]
     Active Substance: OXYCODONE HYDROCHLORIDE
     Dosage: 20 MILLIGRAM
     Route: 048
     Dates: start: 20110411, end: 20110729
  45. KARY UNI [Concomitant]
     Active Substance: PIRENOXINE
     Dosage: QL
     Route: 047
     Dates: start: 20101004, end: 20101215
  46. SOLU-CORTEF [Concomitant]
     Active Substance: HYDROCORTISONE SODIUM SUCCINATE
     Indication: PROPHYLAXIS
     Dosage: 100 MILLIGRAM
     Route: 041
     Dates: start: 20110704, end: 20110704
  47. REVLIMID [Suspect]
     Active Substance: LENALIDOMIDE
     Dosage: 10 MILLIGRAM
     Route: 048
     Dates: start: 20101101, end: 20101121
  48. REVLIMID [Suspect]
     Active Substance: LENALIDOMIDE
     Dosage: 10 MILLIGRAM
     Route: 048
     Dates: start: 20110209, end: 20110301
  49. PREDONINE [Suspect]
     Active Substance: PREDNISOLONE
     Indication: PLASMA CELL MYELOMA
     Dosage: 20 MILLIGRAM
     Route: 048
     Dates: start: 20110330, end: 20110419
  50. HYPEN (INDAPAMIDE) [Suspect]
     Active Substance: INDAPAMIDE
     Dosage: 400 MILLIGRAM
     Route: 048
     Dates: start: 20101001, end: 20101201
  51. DECADRON [Concomitant]
     Active Substance: DEXAMETHASONE
     Dosage: 1 MILLIGRAM
     Route: 048
     Dates: start: 20100820, end: 20100902
  52. OMEPRAZON [Concomitant]
     Active Substance: OMEPRAZOLE
     Dosage: 20 MILLIGRAM
     Route: 048
     Dates: start: 20110209, end: 20110729
  53. MAGLAX [Concomitant]
     Active Substance: MAGNESIUM OXIDE
     Dosage: 1500 MILLIGRAM
     Route: 048
     Dates: start: 20101005, end: 20101031
  54. BISOLVON [Concomitant]
     Active Substance: BROMHEXINE HYDROCHLORIDE
     Indication: PROPHYLAXIS
     Dosage: QL
     Route: 055
     Dates: start: 20100724, end: 20100724
  55. OXYCONTIN [Concomitant]
     Active Substance: OXYCODONE HYDROCHLORIDE
     Dosage: 10 MILLIGRAM
     Route: 048
     Dates: start: 20101004, end: 20110210
  56. KARY UNI [Concomitant]
     Active Substance: PIRENOXINE
     Indication: PROPHYLAXIS
     Dosage: QL
     Route: 047
     Dates: start: 20100825, end: 20100825
  57. KARY UNI [Concomitant]
     Active Substance: PIRENOXINE
     Dosage: QL
     Route: 047
     Dates: start: 20100827, end: 20100924
  58. OXINORM [Concomitant]
     Dosage: 5 MILLIGRAM
     Route: 048
     Dates: start: 20110615, end: 20110729
  59. REVLIMID [Suspect]
     Active Substance: LENALIDOMIDE
     Indication: PLASMA CELL MYELOMA
     Dosage: 25 MILLIGRAM
     Route: 048
     Dates: start: 20100729, end: 20100819
  60. REVLIMID [Suspect]
     Active Substance: LENALIDOMIDE
     Dosage: 25 MILLIGRAM
     Route: 048
     Dates: start: 20100827, end: 20100906
  61. REVLIMID [Suspect]
     Active Substance: LENALIDOMIDE
     Dosage: 10 MILLIGRAM
     Route: 048
     Dates: start: 20101004, end: 20101025
  62. REVLIMID [Suspect]
     Active Substance: LENALIDOMIDE
     Dosage: 10 MILLIGRAM
     Route: 048
     Dates: start: 20110615, end: 20110702
  63. ENDOXAN [Suspect]
     Active Substance: CYCLOPHOSPHAMIDE
     Indication: PLASMA CELL MYELOMA
     Dosage: 100 MILLIGRAM
     Route: 048
     Dates: start: 20110330, end: 20110414
  64. DECADRON [Concomitant]
     Active Substance: DEXAMETHASONE
     Dosage: 1 MILLIGRAM
     Route: 048
     Dates: start: 20100904, end: 20100907
  65. DEXART [Concomitant]
     Active Substance: DEXAMETHASONE SODIUM PHOSPHATE
     Indication: PLASMA CELL MYELOMA
     Dosage: 4A
     Route: 041
     Dates: start: 20100730, end: 20100730
  66. DEXART [Concomitant]
     Active Substance: DEXAMETHASONE SODIUM PHOSPHATE
     Dosage: 33 MILLIGRAM
     Route: 041
     Dates: start: 20100903, end: 20100903
  67. TRYPTANOL [Concomitant]
     Active Substance: AMITRIPTYLINE
     Indication: PRODUCT USED FOR UNKNOWN INDICATION
     Dosage: 50 MILLIGRAM
     Route: 048
     Dates: start: 20100729, end: 20100924
  68. OXYCONTIN [Concomitant]
     Active Substance: OXYCODONE HYDROCHLORIDE
     Dosage: 20 MILLIGRAM
     Route: 048
     Dates: start: 20100802, end: 20100808
  69. ZOMETA [Concomitant]
     Active Substance: ZOLEDRONIC ACID
     Indication: PROPHYLAXIS
     Dosage: 4 MILLIGRAM
     Route: 041
     Dates: start: 20100820, end: 20100820
  70. GRAN [Concomitant]
     Active Substance: FILGRASTIM
     Indication: PROPHYLAXIS
     Dosage: 75 MICROGRAM
     Route: 030
     Dates: start: 20110703, end: 20110710

REACTIONS (16)
  - Stomatitis [Recovering/Resolving]
  - White blood cell count decreased [Recovered/Resolved]
  - Interstitial lung disease [Recovered/Resolved]
  - Pneumonia [Recovered/Resolved]
  - Constipation [Recovered/Resolved]
  - Leukopenia [Recovered/Resolved]
  - Neutrophil count decreased [Recovered/Resolved]
  - Pharyngitis [Recovering/Resolving]
  - Duodenal ulcer [Recovering/Resolving]
  - Hypokalaemia [Recovered/Resolved]
  - Decubitus ulcer [Recovering/Resolving]
  - Gastric ulcer [Recovering/Resolving]
  - Haemoglobin decreased [Recovering/Resolving]
  - Platelet count decreased [Recovered/Resolved]
  - Thrombocytopenia [Recovered/Resolved]
  - Pyrexia [Recovered/Resolved]

NARRATIVE: CASE EVENT DATE: 20100802
